FAERS Safety Report 6672857-5 (Version None)
Quarter: 2010Q2

REPORT INFORMATION
  Report Type: 
  Country: None (occurrence: None)
  Receive Date: 20100408
  Receipt Date: 20100329
  Transmission Date: 20101027
  Serious: Yes (Other)
  Sender: FDA-Public Use
  Company Number: PHEH2010US01657

PATIENT
  Sex: Female
  Weight: 64.399 kg

DRUGS (5)
  1. EXJADE [Suspect]
     Dosage: 1000 MG, QD
     Route: 048
  2. PLAQUENIL [Concomitant]
  3. SIMVASTATIN [Concomitant]
  4. PROCARDIA [Concomitant]
  5. GLIPIZIDE [Concomitant]

REACTIONS (3)
  - BLOOD TEST ABNORMAL [None]
  - EYE IRRITATION [None]
  - VISION BLURRED [None]
